FAERS Safety Report 8099084-1 (Version None)
Quarter: 2012Q1

REPORT INFORMATION
  Report Type: 
  Country: None (occurrence: None)
  Receive Date: 20120129
  Receipt Date: 20111023
  Transmission Date: 20120608
  Serious: Yes (Other)
  Sender: FDA-Public Use
  Company Number: US-ABBOTT-11P-163-0867946-00

PATIENT
  Age: 21 Year
  Sex: Female

DRUGS (4)
  1. ASACOL [Concomitant]
     Indication: PRODUCT USED FOR UNKNOWN INDICATION
  2. PREDNISONE TAB [Concomitant]
     Indication: PRODUCT USED FOR UNKNOWN INDICATION
  3. HUMIRA [Suspect]
     Indication: COLITIS ULCERATIVE
     Dates: start: 20110601, end: 20111001
  4. UNKNOWN BIRTH CONTROL [Concomitant]
     Indication: CONTRACEPTION

REACTIONS (1)
  - DRUG INEFFECTIVE [None]
